FAERS Safety Report 5810231-1 (Version None)
Quarter: 2008Q3

REPORT INFORMATION
  Report Type: 
  Country: None (occurrence: None)
  Receive Date: 20080715
  Receipt Date: 20071213
  Transmission Date: 20090109
  Serious: No
  Sender: FDA-Public Use
  Company Number: A0698811A

PATIENT
  Sex: Female

DRUGS (3)
  1. IMITREX [Suspect]
     Indication: MIGRAINE
     Dosage: 50MG WEEKLY
     Route: 048
     Dates: start: 19970101
  2. CELEXA [Concomitant]
  3. IBUPROFEN [Concomitant]

REACTIONS (3)
  - FATIGUE [None]
  - HYPERAESTHESIA [None]
  - SOMNOLENCE [None]
